FAERS Safety Report 7058535-1 (Version None)
Quarter: 2010Q4

REPORT INFORMATION
  Report Type: 
  Country: None (occurrence: None)
  Receive Date: 20101022
  Receipt Date: 20101015
  Transmission Date: 20110411
  Serious: Yes (Hospitalization)
  Sender: FDA-Public Use
  Company Number: A0810019A

PATIENT
  Age: 45 Year
  Sex: Male
  Weight: 104.5 kg

DRUGS (2)
  1. AVANDIA [Suspect]
     Dosage: 4MG TWICE PER DAY
     Route: 048
     Dates: start: 20060101, end: 20070101
  2. AVANDAMET [Suspect]
     Route: 048
     Dates: end: 20080101

REACTIONS (1)
  - MYOCARDIAL INFARCTION [None]
